FAERS Safety Report 10485914 (Version 7)
Quarter: 2022Q1

REPORT INFORMATION
  Report Type: Spontaneous
  Country: NL (occurrence: NL)
  Receive Date: 20141001
  Receipt Date: 20220209
  Transmission Date: 20220424
  Serious: Yes (Death, Life-Threatening, Hospitalization, Other)
  Sender: FDA-Public Use
  Company Number: NL-PFIZER-2014262445

PATIENT
  Age: 77 Year
  Sex: Male

DRUGS (15)
  1. AMOXICILLIN [Suspect]
     Active Substance: AMOXICILLIN
     Indication: Brain abscess
     Dosage: 2 GRAM, (EVERY 4 HRS), (2 G, SIX TIMES DAILY, INTERVAL: 1) (12 GRAM, ONCE A DAY)
     Route: 042
  2. CLARITHROMYCIN [Suspect]
     Active Substance: CLARITHROMYCIN
     Indication: Brain abscess
     Dosage: 250 MILLIGRAM, TWO TIMES A DAY
     Route: 048
  3. CLARITHROMYCIN [Suspect]
     Active Substance: CLARITHROMYCIN
     Indication: Headache
     Dosage: 500 MILLIGRAM, ONCE A DAY
     Route: 048
  4. VANCOMYCIN HYDROCHLORIDE [Suspect]
     Active Substance: VANCOMYCIN HYDROCHLORIDE
     Indication: Brain abscess
     Dosage: UNK
     Route: 042
  5. VANCOMYCIN HYDROCHLORIDE [Suspect]
     Active Substance: VANCOMYCIN HYDROCHLORIDE
     Indication: Streptococcal infection
     Dosage: GUIDED BY PLASMA CONCENTRATION
     Route: 041
  6. CEFTRIAXONE [Suspect]
     Active Substance: CEFTRIAXONE
     Indication: Headache
     Dosage: 2 GRAM, TWO TIMES A DAY, (INTERVAL: 1)
     Route: 042
  7. CEFTRIAXONE [Suspect]
     Active Substance: CEFTRIAXONE
     Indication: Confusional state
     Dosage: UNK
     Route: 065
  8. CEFTRIAXONE [Suspect]
     Active Substance: CEFTRIAXONE
     Indication: Brain abscess
  9. CLEMIZOLE PENICILLIN [Suspect]
     Active Substance: CLEMIZOLE PENICILLIN
     Indication: Brain abscess
     Dosage: 12000000 INTERNATIONAL UNIT, ONCE A DAY
     Route: 065
  10. CLEMIZOLE PENICILLIN [Suspect]
     Active Substance: CLEMIZOLE PENICILLIN
     Indication: Erythema
     Dosage: 1200 INTERNATIONAL UNIT, ONCE A DAY
     Route: 065
  11. PENICILLIN [Suspect]
     Active Substance: PENICILLIN
     Indication: Brain abscess
     Dosage: 12 MILLION INTERNATIONAL UNIT, ONCE A DAY
     Route: 042
  12. PENICILLIN [Suspect]
     Active Substance: PENICILLIN
     Indication: Erythema
  13. METRONIDAZOLE [Suspect]
     Active Substance: METRONIDAZOLE
     Indication: Bacterial infection
     Dosage: 500 MILLIGRAM, 3 TIMES A DAY
     Route: 042
  14. NOREPINEPHRINE [Concomitant]
     Active Substance: NOREPINEPHRINE
     Indication: Product used for unknown indication
     Dosage: UNK
     Route: 065
  15. HYDROCORTISONE [Concomitant]
     Active Substance: HYDROCORTISONE
     Indication: Product used for unknown indication
     Dosage: 300 MILLIGRAM, ONCE A DAY
     Route: 065

REACTIONS (30)
  - Respiratory failure [Fatal]
  - Haemodynamic instability [Fatal]
  - Renal failure [Fatal]
  - Drug reaction with eosinophilia and systemic symptoms [Fatal]
  - Acute kidney injury [Fatal]
  - Acute hepatic failure [Fatal]
  - Multiple organ dysfunction syndrome [Fatal]
  - Blood bilirubin increased [Fatal]
  - Skin exfoliation [Fatal]
  - Prothrombin time prolonged [Fatal]
  - Urine output decreased [Fatal]
  - Diffuse alveolar damage [Fatal]
  - C-reactive protein increased [Fatal]
  - Blood alkaline phosphatase increased [Fatal]
  - Blood lactate dehydrogenase increased [Fatal]
  - Skin exfoliation [Fatal]
  - Dyspnoea [Fatal]
  - Haemoglobin decreased [Fatal]
  - Alanine aminotransferase increased [Fatal]
  - Blood creatinine increased [Fatal]
  - Haemodynamic instability [Fatal]
  - Heart rate increased [Fatal]
  - Liver function test abnormal [Fatal]
  - Gamma-glutamyltransferase increased [Fatal]
  - Pyrexia [Fatal]
  - Pruritus [Fatal]
  - Disorientation [Fatal]
  - Oliguria [Fatal]
  - Erythema [Fatal]
  - Jaundice [Fatal]
